FAERS Safety Report 9522879 (Version 1)
Quarter: 2013Q1

REPORT INFORMATION
  Report Type: Spontaneous
  Country: US (occurrence: None)
  Receive Date: 20130305
  Receipt Date: 20130305
  Transmission Date: 20140127
  Serious: Yes (Hospitalization, Other)
  Sender: FDA-Public Use
  Company Number: 163-21880-12080493

PATIENT
  Age: 77 Year
  Sex: Male

DRUGS (29)
  1. REVLIMID [Suspect]
     Indication: PLASMA CELL MYELOMA
     Dosage: 10 MG, 21 IN 28 D,PO
     Route: 048
     Dates: start: 20120319
  2. LISINOPRIL (LISINOPRIL) [Concomitant]
  3. ASPIRIN [Concomitant]
  4. NEXIUM [Concomitant]
  5. LIPITOR (ATORVASTATIN) [Concomitant]
  6. FELODIPINE (FELODIPINE) [Concomitant]
  7. TRICOR (FENOFIBRATE) [Concomitant]
  8. KCL-20 [Concomitant]
  9. UROXATRAL (ALFUZOSIN HYDROCHLORIDE) [Concomitant]
  10. MIRALAX [Concomitant]
  11. LASIX (FUROSEMIDE) [Concomitant]
  12. NEURONTIN (GABAPENTIN) [Concomitant]
  13. DURAGESIC (FENTANYL) [Concomitant]
  14. LEXAPRO (ESCITALOPRAM OXALATE) [Concomitant]
  15. ATIVAN (LORAZEPAM) [Concomitant]
  16. METOPROLOL TARTRATE (METOPROLOL TARTRATE) [Concomitant]
  17. MUCINEX (GUAIFENESIN) [Concomitant]
  18. MULTAQ (DRONEDARONE HYDROCHLORIDE) [Concomitant]
  19. OXYCODONE (OKXYCODONE) [Concomitant]
  20. COUMADIN (WARFARIN SODIUM) [Concomitant]
  21. NORMAL SALINE (SODIUM CHLORIDE) [Concomitant]
  22. FLORINEF (FLUDROCORTISONE ACETATE) [Concomitant]
  23. ALFUZOSIN (ALFUZOSIN) [Concomitant]
  24. FENTANYL (FENTANYL) [Concomitant]
  25. NORVASC (AMLODIPINE BESILATE) [Concomitant]
  26. MAGNESIUM OXIDE (MAGNESIUM OXIDE) [Concomitant]
  27. LOVENOX (HEPARIN-FRACTION, SODIUM SALT) [Concomitant]
  28. ZOFRAN (ONDANSETRON HYDROCHLORIDE) [Concomitant]
  29. PANTOPRAZOLE (PANTOPRAZOLE) [Concomitant]

REACTIONS (9)
  - Local swelling [None]
  - Muscular weakness [None]
  - Venous thrombosis [None]
  - Bradycardia [None]
  - Hypotension [None]
  - Anaemia [None]
  - Thrombocytopenia [None]
  - Blood magnesium decreased [None]
  - Hypokalaemia [None]
